FAERS Safety Report 22298069 (Version 1)
Quarter: 2023Q2

REPORT INFORMATION
  Report Type: Spontaneous
  Country: DE (occurrence: DE)
  Receive Date: 20230509
  Receipt Date: 20230509
  Transmission Date: 20230722
  Serious: Yes (Hospitalization)
  Sender: FDA-Public Use
  Company Number: None

PATIENT
  Sex: Female

DRUGS (21)
  1. CIMZIA [Suspect]
     Active Substance: CERTOLIZUMAB PEGOL
     Indication: Product used for unknown indication
     Dosage: 200 MILLIGRAM
     Dates: start: 201503, end: 201506
  2. ORENCIA [Suspect]
     Active Substance: ABATACEPT
     Indication: Product used for unknown indication
     Dosage: 125 MILLIGRAM
  3. ORENCIA [Suspect]
     Active Substance: ABATACEPT
     Dosage: 125 MILLIGRAM
     Dates: start: 201609, end: 201712
  4. HUMIRA [Suspect]
     Active Substance: ADALIMUMAB
     Indication: Rheumatoid arthritis
     Dosage: 40 MILLIGRAM
     Dates: start: 201506, end: 201512
  5. OLUMIANT [Suspect]
     Active Substance: BARICITINIB
     Indication: Product used for unknown indication
     Dosage: 2 MILLIGRAM
     Dates: start: 202107, end: 202109
  6. METHOTREXATE [Suspect]
     Active Substance: METHOTREXATE
     Indication: Rheumatoid arthritis
     Dosage: 20 MILLIGRAM
     Dates: start: 20150320
  7. METHOTREXATE [Suspect]
     Active Substance: METHOTREXATE
     Dosage: 20 MILLIGRAM
     Dates: start: 20160321
  8. METHOTREXATE [Suspect]
     Active Substance: METHOTREXATE
     Dosage: 20 MILLIGRAM
     Dates: start: 20200610
  9. METHOTREXATE [Suspect]
     Active Substance: METHOTREXATE
     Dosage: 20 MILLIGRAM
     Dates: start: 20160915
  10. METHOTREXATE [Suspect]
     Active Substance: METHOTREXATE
     Dosage: 20 MILLIGRAM
     Dates: start: 20170309
  11. METHOTREXATE [Suspect]
     Active Substance: METHOTREXATE
     Dosage: 20 MILLIGRAM
     Dates: start: 20180913
  12. METHOTREXATE [Suspect]
     Active Substance: METHOTREXATE
     Dosage: 20 MILLIGRAM
     Dates: start: 20220511
  13. METHOTREXATE [Suspect]
     Active Substance: METHOTREXATE
     Dosage: 20 MILLIGRAM
     Dates: start: 20190911
  14. METHOTREXATE [Suspect]
     Active Substance: METHOTREXATE
     Dosage: 20 MILLIGRAM
     Dates: start: 20200903
  15. METHOTREXATE [Suspect]
     Active Substance: METHOTREXATE
     Dosage: 20 MILLIGRAM
     Dates: start: 20210927
  16. METHOTREXATE [Suspect]
     Active Substance: METHOTREXATE
     Dosage: 20 MILLIGRAM
     Dates: start: 20150602
  17. METHOTREXATE [Suspect]
     Active Substance: METHOTREXATE
     Dosage: 20 MILLIGRAM
     Dates: start: 20220915
  18. METHOTREXATE [Suspect]
     Active Substance: METHOTREXATE
     Dosage: 20 MILLIGRAM
     Dates: start: 20210303
  19. METHOTREXATE [Suspect]
     Active Substance: METHOTREXATE
     Dosage: 20 MILLIGRAM
     Dates: start: 20150907
  20. METHOTREXATE [Suspect]
     Active Substance: METHOTREXATE
     Dosage: 20 MILLIGRAM
     Dates: start: 20170914
  21. METHOTREXATE [Suspect]
     Active Substance: METHOTREXATE
     Dosage: UNK
     Dates: start: 20190326

REACTIONS (1)
  - Osteoarthritis [Unknown]

NARRATIVE: CASE EVENT DATE: 20220204
